FAERS Safety Report 7215579 (Version 2)
Quarter: 2012Q4

REPORT INFORMATION
  Report Type: 
  Country: US (occurrence: US)
  Receive Date: 20091214
  Receipt Date: 20121218
  Transmission Date: 20130627
  Serious: No
  Sender: FDA-Public Use
  Company Number: US-BRISTOL-MYERS SQUIBB COMPANY-14558506

PATIENT
  Age: 62 Year
  Sex: Male
  Weight: 130.61 kg

DRUGS (6)
  1. ABILIFY TABS [Suspect]
     Indication: POST-TRAUMATIC STRESS DISORDER
     Dates: start: 200705, end: 200810
  2. ABILIFY TABS [Suspect]
     Indication: BIPOLAR DISORDER
     Dates: start: 200705, end: 200810
  3. LITHIUM [Concomitant]
  4. CLONAZEPAM [Concomitant]
  5. ASPIRIN [Concomitant]
  6. LISINOPRIL [Concomitant]

REACTIONS (3)
  - Erectile dysfunction [Not Recovered/Not Resolved]
  - Akathisia [Unknown]
  - Feeling abnormal [Unknown]
